FAERS Safety Report 9730020 (Version 1)
Quarter: 2013Q4

REPORT INFORMATION
  Report Type: Spontaneous
  Country: DE (occurrence: DE)
  Receive Date: 20131204
  Receipt Date: 20131204
  Transmission Date: 20140711
  Serious: Yes (Other)
  Sender: FDA-Public Use
  Company Number: DE-PFIZER INC-2013341508

PATIENT
  Age: 52 Year
  Sex: Male

DRUGS (1)
  1. CAVERJECT [Suspect]
     Dosage: 20 UG, UNK
     Dates: start: 20131125

REACTIONS (3)
  - Painful erection [Unknown]
  - Erection increased [Unknown]
  - Erectile dysfunction [Unknown]
